FAERS Safety Report 5429818-3 (Version None)
Quarter: 2007Q3

REPORT INFORMATION
  Report Type: 
  Country: None (occurrence: None)
  Receive Date: 20070829
  Receipt Date: 20070824
  Transmission Date: 20080115
  Serious: Yes (Other)
  Sender: FDA-Public Use
  Company Number: JP-SANOFI-SYNTHELABO-A01200709266

PATIENT
  Age: 70 Year
  Sex: Female

DRUGS (6)
  1. CEFZON [Concomitant]
     Indication: DRUG USE FOR UNKNOWN INDICATION
     Dosage: UNK
     Route: 065
  2. TARGOCID [Concomitant]
     Indication: DRUG USE FOR UNKNOWN INDICATION
     Dosage: UNK
     Route: 065
  3. ACLACINON [Concomitant]
     Indication: DRUG USE FOR UNKNOWN INDICATION
     Dosage: UNK
     Route: 065
  4. DOGMATYL [Suspect]
     Indication: DRUG USE FOR UNKNOWN INDICATION
     Dosage: UNK
     Route: 065
  5. ZOLPIDEM [Suspect]
     Indication: DRUG USE FOR UNKNOWN INDICATION
     Dosage: UNK
     Route: 065
  6. FUNGUARD [Concomitant]
     Indication: DRUG USE FOR UNKNOWN INDICATION
     Dosage: UNK
     Route: 065

REACTIONS (1)
  - LEUKOENCEPHALOPATHY [None]
